FAERS Safety Report 13367733 (Version 1)
Quarter: 2017Q1

REPORT INFORMATION
  Report Type: Spontaneous
  Country: AT (occurrence: AT)
  Receive Date: 20170324
  Receipt Date: 20170324
  Transmission Date: 20170429
  Serious: Yes (Other)
  Sender: FDA-Public Use
  Company Number: AT-BAYER-2017-010286

PATIENT

DRUGS (7)
  1. XARELTO [Concomitant]
     Active Substance: RIVAROXABAN
     Dosage: 10MG 1-0-0
  2. DOXAPRESS [Concomitant]
     Dosage: 4MG 0-0-1/2
  3. DIAMICRON MR [Concomitant]
     Active Substance: GLICLAZIDE
     Dosage: 30MG 1-1-0
  4. PANTOPRAZOLE [Concomitant]
     Active Substance: PANTOPRAZOLE SODIUM
     Dosage: 40MG 1-0-0
  5. ENAC [Concomitant]
     Dosage: 20MG 1-0-1
  6. STIVARGA [Suspect]
     Active Substance: REGORAFENIB
     Dosage: UNK
     Dates: start: 201504, end: 20150810
  7. NOMEXOR [Concomitant]
     Active Substance: NEBIVOLOL HYDROCHLORIDE
     Dosage: 5MG 1/2-0-0

REACTIONS (5)
  - Disease progression [None]
  - Decreased appetite [None]
  - Fatigue [None]
  - Weight decreased [None]
  - Dysphonia [None]

NARRATIVE: CASE EVENT DATE: 201508
